FAERS Safety Report 13200338 (Version 1)
Quarter: 2017Q1

REPORT INFORMATION
  Report Type: Spontaneous
  Country: BR (occurrence: BR)
  Receive Date: 20170208
  Receipt Date: 20170208
  Transmission Date: 20170428
  Serious: Yes (Other)
  Sender: FDA-Public Use
  Company Number: PHHY2017BR015958

PATIENT
  Sex: Female

DRUGS (1)
  1. CODATEN [Suspect]
     Active Substance: CODEINE PHOSPHATE\DICLOFENAC SODIUM
     Indication: PRODUCT USED FOR UNKNOWN INDICATION
     Dosage: UNK
     Route: 065

REACTIONS (6)
  - Sluggishness [Unknown]
  - Back pain [Unknown]
  - Constipation [Unknown]
  - Angina pectoris [Unknown]
  - Heart rate increased [Unknown]
  - Fatigue [Unknown]
